FAERS Safety Report 6826009-6 (Version None)
Quarter: 2010Q3

REPORT INFORMATION
  Report Type: 
  Country: None (occurrence: None)
  Receive Date: 20100707
  Receipt Date: 20100707
  Transmission Date: 20110219
  Serious: Yes (Hospitalization, Disabling, Other)
  Sender: FDA-Public Use
  Company Number: None

PATIENT
  Sex: Female
  Weight: 81.6475 kg

DRUGS (1)
  1. ATIVAN [Suspect]
     Dosage: 2 MG PER DAY - TOTAL - VARIED MOUTH
     Route: 048
     Dates: start: 20080301, end: 20081201

REACTIONS (10)
  - ANXIETY [None]
  - CONDITION AGGRAVATED [None]
  - DEPRESSION [None]
  - DYSKINESIA [None]
  - EYE PAIN [None]
  - HEADACHE [None]
  - PAIN [None]
  - PARAESTHESIA [None]
  - RESTLESSNESS [None]
  - SUICIDE ATTEMPT [None]
